FAERS Safety Report 14316601 (Version 2)
Quarter: 2018Q1

REPORT INFORMATION
  Report Type: Report from Study
  Country: None (occurrence: US)
  Receive Date: 20171222
  Receipt Date: 20180214
  Transmission Date: 20180509
  Serious: Yes (Disabling)
  Sender: FDA-Public Use
  Company Number: US-ABBVIE-17K-163-2132855-00

PATIENT
  Sex: Female

DRUGS (1)
  1. HUMIRA [Suspect]
     Active Substance: ADALIMUMAB
     Indication: CROHN^S DISEASE
     Route: 058
     Dates: start: 201706

REACTIONS (9)
  - Arthritis [Recovered/Resolved with Sequelae]
  - Therapeutic response unexpected [Recovered/Resolved with Sequelae]
  - Colectomy [Unknown]
  - Abdominal discomfort [Unknown]
  - Disability [Unknown]
  - Pre-existing condition improved [Recovered/Resolved with Sequelae]
  - Arthralgia [Recovered/Resolved]
  - Crohn^s disease [Recovered/Resolved with Sequelae]
  - Therapeutic response shortened [Recovered/Resolved]
